FAERS Safety Report 8815000 (Version 4)
Quarter: 2013Q1

REPORT INFORMATION
  Report Type: Spontaneous
  Country: JP (occurrence: JP)
  Receive Date: 20120928
  Receipt Date: 20130312
  Transmission Date: 20140127
  Serious: Yes (Hospitalization, Other)
  Sender: FDA-Public Use
  Company Number: JP-PFIZER INC-2012239143

PATIENT
  Age: 43 Year
  Sex: Female

DRUGS (4)
  1. FLUOROURACIL [Suspect]
     Indication: COLON CANCER METASTATIC
     Dosage: UNK
  2. LEUCOVORIN [Suspect]
     Indication: COLON CANCER METASTATIC
     Dosage: UNK
  3. LEUCOVORIN [Suspect]
     Indication: METASTASES TO LIVER
  4. OXALIPLATIN [Suspect]
     Indication: COLON CANCER METASTATIC
     Dosage: UNK

REACTIONS (1)
  - Posterior reversible encephalopathy syndrome [Recovered/Resolved]
